FAERS Safety Report 19570198 (Version 5)
Quarter: 2021Q3

REPORT INFORMATION
  Report Type: Spontaneous
  Country: ES (occurrence: ES)
  Receive Date: 20210716
  Receipt Date: 20210921
  Transmission Date: 20211014
  Serious: Yes (Hospitalization)
  Sender: FDA-Public Use
  Company Number: ES-JNJFOC-20210713583

PATIENT
  Age: 62 Year
  Sex: Male

DRUGS (1)
  1. DARZALEX [Suspect]
     Active Substance: DARATUMUMAB
     Indication: PLASMA CELL MYELOMA
     Route: 042
     Dates: end: 20210705

REACTIONS (5)
  - Pyrexia [Recovering/Resolving]
  - Hospitalisation [Unknown]
  - Asthenia [Unknown]
  - Urinary tract infection [Unknown]
  - Transfusion [Recovering/Resolving]

NARRATIVE: CASE EVENT DATE: 20210705
